FAERS Safety Report 8533868-8 (Version None)
Quarter: 2012Q3

REPORT INFORMATION
  Report Type: 
  Country: None (occurrence: None)
  Receive Date: 20120711
  Receipt Date: 20110302
  Transmission Date: 20120928
  Serious: No
  Sender: FDA-Public Use
  Company Number: 1-007

PATIENT
  Sex: Male

DRUGS (1)
  1. HORSE EPITHELIUM [Suspect]
     Indication: RHINITIS ALLERGIC
     Dosage: 0.9 CC

REACTIONS (1)
  - ADVERSE DRUG REACTION [None]
